FAERS Safety Report 11273379 (Version 1)
Quarter: 2015Q3

REPORT INFORMATION
  Report Type: Spontaneous
  Country: US (occurrence: None)
  Receive Date: 20150714
  Receipt Date: 20150714
  Transmission Date: 20151125
  Serious: Yes (Other)
  Sender: FDA-Public Use
  Company Number: None

PATIENT
  Age: 36 Year
  Sex: Female

DRUGS (2)
  1. ASTHMA MEDICATION [Concomitant]
     Active Substance: UNSPECIFIED INGREDIENT
  2. MIRENA [Suspect]
     Active Substance: LEVONORGESTREL

REACTIONS (6)
  - Back pain [None]
  - Arthralgia [None]
  - Vaginal haemorrhage [None]
  - Ovarian cyst [None]
  - Abdominal distension [None]
  - Vaginal odour [None]

NARRATIVE: CASE EVENT DATE: 20150518
